FAERS Safety Report 14357340 (Version 2)
Quarter: 2018Q1

REPORT INFORMATION
  Report Type: Report from Study
  Country: US (occurrence: US)
  Receive Date: 20180105
  Receipt Date: 20180123
  Transmission Date: 20180509
  Serious: No
  Sender: FDA-Public Use
  Company Number: US-AMGEN-USASL2017184721

PATIENT
  Sex: Male
  Weight: 87.53 kg

DRUGS (9)
  1. METOPROLOL. [Concomitant]
     Active Substance: METOPROLOL
     Dosage: 50 MG, QD
  2. REPATHA [Suspect]
     Active Substance: EVOLOCUMAB
     Indication: PRODUCT USED FOR UNKNOWN INDICATION
     Dosage: 140 MG, Q2WK
     Route: 065
  3. EZETIMIBE. [Concomitant]
     Active Substance: EZETIMIBE
     Indication: CORONARY ARTERY DISEASE
     Dosage: 10 MG, QD
  4. LISINOPRIL. [Concomitant]
     Active Substance: LISINOPRIL
     Dosage: 40 MG, QD
     Route: 048
  5. CLOPIDOGREL [Concomitant]
     Active Substance: CLOPIDOGREL BISULFATE
     Indication: CORONARY ARTERY DISEASE
     Dosage: 75 MG, QD
  6. PROSTAVASIN [Concomitant]
     Active Substance: ALPROSTADIL ALFADEX
     Indication: CORONARY ARTERY DISEASE
     Dosage: 40 MG, QD
  7. PIOGLITAZONE. [Concomitant]
     Active Substance: PIOGLITAZONE
     Indication: TYPE 2 DIABETES MELLITUS
     Dosage: 30 MG, QD
  8. LEVOZIN [Concomitant]
     Indication: TYPE 2 DIABETES MELLITUS
     Dosage: 60 MG, QD
  9. LIRAGLUTIDE [Concomitant]
     Active Substance: LIRAGLUTIDE
     Dosage: 1.8 MG, QD
     Route: 058

REACTIONS (3)
  - Decreased appetite [Unknown]
  - Arthralgia [Unknown]
  - Back pain [Unknown]
